FAERS Safety Report 6523925-X (Version None)
Quarter: 2009Q4

REPORT INFORMATION
  Report Type: 
  Country: None (occurrence: None)
  Receive Date: 20091230
  Receipt Date: 20091230
  Transmission Date: 20100525
  Serious: Yes (Other)
  Sender: FDA-Public Use
  Company Number: None

PATIENT
  Sex: Female
  Weight: 64.4108 kg

DRUGS (1)
  1. TYLENOL RAPID RELEASE EXTRA STRENGTH [Suspect]
     Indication: MYALGIA
     Dosage: AS NEEDED PO ABOUT 4 WEEKS
     Route: 048

REACTIONS (7)
  - ABDOMINAL DISCOMFORT [None]
  - ABDOMINAL PAIN UPPER [None]
  - DIARRHOEA [None]
  - GASTROINTESTINAL DISORDER [None]
  - NAUSEA [None]
  - PRODUCT CONTAMINATION [None]
  - VOMITING [None]
